FAERS Safety Report 8411967-9 (Version None)
Quarter: 2012Q2

REPORT INFORMATION
  Report Type: 
  Country: None (occurrence: None)
  Receive Date: 20120605
  Receipt Date: 20120501
  Transmission Date: 20120825
  Serious: No
  Sender: FDA-Public Use
  Company Number: US-AMGEN-USASP2012025750

PATIENT
  Age: 41 Year
  Sex: Female
  Weight: 104.31 kg

DRUGS (14)
  1. FOLIC ACID [Concomitant]
     Dosage: 1 MG 1 TAB (S) ORALLY QD
  2. NAPROSYN [Concomitant]
     Dosage: 500 MG 1 TAB(S) ORALLY 2 TIMES A DAY
  3. POLYSACCHARIDE IRON [Concomitant]
     Dosage: 150 MG 1 CAPS ORALLY QD
  4. ALBUTEROL [Concomitant]
     Dosage: 90 MICRO GRAM/ INHALATION 2 PUFFS PRN
  5. ENBREL [Suspect]
     Indication: PSORIASIS
     Dosage: 50 MG, QWK
     Route: 058
     Dates: start: 20120301
  6. ENBREL [Suspect]
     Indication: PSORIATIC ARTHROPATHY
  7. CLARITIN-D [Concomitant]
     Dosage: 5 MG- 120 MG 1 TAB(S) ORALLY EVERY 12 HOURS
  8. DOVONEX [Concomitant]
     Dosage: 0.005% 1Q APP APPLIED TOPICALLY PRN
  9. EFFEXOR XR [Concomitant]
     Dosage: 150 MG 1 TAB QD
  10. SINGULAIR [Concomitant]
     Dosage: 10 MG 1 TAB ONCE A DAY (IN THE EVENING)
  11. MULTIVITAMIN                       /00097801/ [Concomitant]
     Dosage: 1 QD
  12. CALCIUM [Concomitant]
     Dosage: 600 MG 12 TIMES A DAY
  13. LIDODERM [Concomitant]
     Dosage: 5% 1 PATCH APPLIED TOPICALLY PRN
  14. METHOTREXATE [Concomitant]
     Dosage: 2.5 MG 4 TAB ORALLY ONCE A WEEK

REACTIONS (2)
  - INJECTION SITE HAEMATOMA [None]
  - INJECTION SITE HAEMORRHAGE [None]
